FAERS Safety Report 9449408 (Version 3)
Quarter: 2014Q2

REPORT INFORMATION
  Report Type: Spontaneous
  Country: US (occurrence: US)
  Receive Date: 20130809
  Receipt Date: 20140410
  Transmission Date: 20141212
  Serious: No
  Sender: FDA-Public Use
  Company Number: US-009507513-1308USA003501

PATIENT
  Sex: Male

DRUGS (3)
  1. PEGINTRON [Suspect]
     Indication: HEPATITIS C
     Dosage: 0.4CC(ML), Q7DAYS (ONCE A WEEK)
     Route: 058
     Dates: start: 20130705
  2. REBETOL [Suspect]
     Indication: HEPATITIS C
     Dosage: 400 MG, TWICE A DAY
     Route: 048
     Dates: start: 20130705
  3. VICTRELIS [Suspect]
     Indication: HEPATITIS C
     Dosage: THREE TIMES A DAY, DAILY DOSE 2400MG
     Route: 048
     Dates: start: 20130802

REACTIONS (17)
  - White blood cell count abnormal [Unknown]
  - Breath odour [Unknown]
  - Abnormal behaviour [Unknown]
  - Bone pain [Unknown]
  - Memory impairment [Unknown]
  - Dysgeusia [Unknown]
  - Haemoglobin decreased [Unknown]
  - Irritability [Unknown]
  - Dry mouth [Unknown]
  - Dyspnoea [Unknown]
  - Dyspnoea [Unknown]
  - Fatigue [Unknown]
  - White blood cell count decreased [Unknown]
  - Cough [Unknown]
  - Depression [Unknown]
  - Asthenia [Unknown]
  - Decreased appetite [Unknown]
